FAERS Safety Report 14697896 (Version 2)
Quarter: 2018Q2

REPORT INFORMATION
  Report Type: Spontaneous
  Country: IT (occurrence: IT)
  Receive Date: 20180330
  Receipt Date: 20180401
  Transmission Date: 20180711
  Serious: Yes (Hospitalization)
  Sender: FDA-Public Use
  Company Number: IT-UCBSA-2018012144

PATIENT
  Age: 31 Year
  Sex: Male

DRUGS (1)
  1. KEPPRA [Suspect]
     Active Substance: LEVETIRACETAM
     Indication: DRUG ABUSE
     Dosage: 8 DF, TOTAL (STRENGTH: 500 MG)
     Route: 048
     Dates: start: 20171214, end: 20171214

REACTIONS (3)
  - Suicide attempt [Unknown]
  - Drug abuse [Unknown]
  - Sopor [Unknown]

NARRATIVE: CASE EVENT DATE: 20171214
